FAERS Safety Report 10311572 (Version 1)
Quarter: 2014Q3

REPORT INFORMATION
  Report Type: Spontaneous
  Country: GB (occurrence: GB)
  Receive Date: 20140717
  Receipt Date: 20140717
  Transmission Date: 20150326
  Serious: Yes (Other)
  Sender: FDA-Public Use
  Company Number: PHHY2014GB085590

PATIENT
  Age: 43 Year
  Sex: Female
  Weight: 110 kg

DRUGS (9)
  1. DOXYCYCLINE. [Concomitant]
     Active Substance: DOXYCYCLINE
  2. RAMIPRIL. [Suspect]
     Active Substance: RAMIPRIL
     Dosage: 5 MG, UNK
     Route: 048
     Dates: start: 20140612, end: 20140624
  3. CO-DYDRAMOL [Concomitant]
     Active Substance: ACETAMINOPHEN\DIHYDROCODEINE
  4. CO-AMOXICLAV [Concomitant]
     Active Substance: AMOXICILLIN\CLAVULANIC ACID
  5. PREDNISOLONE. [Concomitant]
     Active Substance: PREDNISOLONE
  6. RAMIPRIL. [Suspect]
     Active Substance: RAMIPRIL
     Dosage: 2.5 MG, UNK
     Route: 048
     Dates: end: 20140611
  7. PULMICORT TURBUHALER [Concomitant]
     Active Substance: BUDESONIDE
  8. PARACETAMOL [Concomitant]
     Active Substance: ACETAMINOPHEN
  9. RAMIPRIL. [Suspect]
     Active Substance: RAMIPRIL
     Indication: HYPERTENSION
     Dosage: 1.25 MG, UNK
     Route: 048
     Dates: start: 20140320

REACTIONS (6)
  - Pain in extremity [Recovered/Resolved]
  - Alopecia [Recovered/Resolved]
  - Peripheral swelling [Recovered/Resolved]
  - Musculoskeletal pain [Recovered/Resolved]
  - Arthralgia [Recovered/Resolved]
  - Joint swelling [Recovered/Resolved]

NARRATIVE: CASE EVENT DATE: 20140614
